FAERS Safety Report 5520275-5 (Version None)
Quarter: 2007Q4

REPORT INFORMATION
  Report Type: 
  Country: None (occurrence: None)
  Receive Date: 20071117
  Receipt Date: 20071109
  Transmission Date: 20080405
  Serious: Yes (Hospitalization, Other)
  Sender: FDA-Public Use
  Company Number: PHFR2007GB03347

PATIENT
  Age: 72 Year
  Sex: Male

DRUGS (6)
  1. RAMIPRIL [Concomitant]
     Indication: HYPERTENSION
     Dosage: 10 MG, QD
     Route: 048
  2. SERETIDE [Concomitant]
     Indication: ASTHMA
     Dosage: TWICE DAILY
  3. BACLOFEN [Suspect]
     Indication: HICCUPS
     Dosage: 5 MG, BID
     Route: 048
     Dates: start: 20070917, end: 20070920
  4. ALLOPURINOL [Concomitant]
     Dosage: 100 MG, QD
     Route: 048
     Dates: start: 20070801
  5. CYTARABINE [Concomitant]
     Indication: ACUTE MYELOID LEUKAEMIA
     Dosage: 300 MG, BID
     Dates: start: 20070904, end: 20070920
  6. TIPIFARNIB [Concomitant]
     Indication: ACUTE MYELOID LEUKAEMIA

REACTIONS (7)
  - DYSARTHRIA [None]
  - GASTROINTESTINAL INFECTION [None]
  - LOSS OF CONSCIOUSNESS [None]
  - MALAISE [None]
  - MUSCLE TWITCHING [None]
  - RASH GENERALISED [None]
  - VOMITING [None]
